FAERS Safety Report 4407342-4 (Version None)
Quarter: 2004Q3

REPORT INFORMATION
  Report Type: 
  Country: None (occurrence: None)
  Receive Date: 20040721
  Receipt Date: 20040706
  Transmission Date: 20050211
  Serious: Yes (Hospitalization)
  Sender: FDA-Public Use
  Company Number: USA040771875

PATIENT
  Age: 32 Year
  Sex: Female
  Weight: 91 kg

DRUGS (3)
  1. ZYPREXA [Suspect]
     Indication: PSYCHOTIC DISORDER
  2. LEXAPRO [Concomitant]
  3. ATIVAN [Concomitant]

REACTIONS (4)
  - DISEASE RECURRENCE [None]
  - PSYCHOTIC DISORDER [None]
  - TREATMENT NONCOMPLIANCE [None]
  - WEIGHT INCREASED [None]
